FAERS Safety Report 24753164 (Version 1)
Quarter: 2024Q4

REPORT INFORMATION
  Report Type: Spontaneous
  Country: US (occurrence: US)
  Receive Date: 20241219
  Receipt Date: 20241219
  Transmission Date: 20250115
  Serious: No
  Sender: PACIRA
  Company Number: US-ORG100016242-2023000341

PATIENT
  Sex: Female

DRUGS (1)
  1. EXPAREL [Suspect]
     Active Substance: BUPIVACAINE
     Indication: Breast reconstruction
     Dosage: ABOUT 20 TO 30 ML THAT AS INFILTRATED AND SPREAD OVER BOTH BREASTS
     Route: 050
     Dates: start: 20231206, end: 20231206

REACTIONS (1)
  - Product use issue [Unknown]
